FAERS Safety Report 14379854 (Version 1)
Quarter: 2018Q1

REPORT INFORMATION
  Report Type: Spontaneous
  Country: US (occurrence: US)
  Receive Date: 20180112
  Receipt Date: 20180112
  Transmission Date: 20180509
  Serious: No
  Sender: FDA-Public Use
  Company Number: US-PFIZER INC-2017536550

PATIENT
  Age: 72 Year
  Sex: Female
  Weight: 64 kg

DRUGS (3)
  1. PREMARIN [Suspect]
     Active Substance: ESTROGENS, CONJUGATED
     Indication: VULVOVAGINAL DRYNESS
     Dosage: 1 G, THREE TIMES PER WEEK
     Route: 067
  2. PREMARIN [Suspect]
     Active Substance: ESTROGENS, CONJUGATED
     Indication: VULVOVAGINAL PAIN
     Dosage: 1 G, ONCE A WEEK
     Route: 067
     Dates: start: 2015
  3. PREMARIN [Suspect]
     Active Substance: ESTROGENS, CONJUGATED
     Dosage: 20 MG, AS NEEDED (10YRS PRN)

REACTIONS (3)
  - Intentional product misuse [Not Recovered/Not Resolved]
  - Product use issue [Unknown]
  - Drug ineffective [Unknown]

NARRATIVE: CASE EVENT DATE: 2015
